FAERS Safety Report 8860272 (Version 1)
Quarter: 2012Q4

REPORT INFORMATION
  Report Type: 
  Country: US (occurrence: US)
  Receive Date: 20121025
  Receipt Date: 20121025
  Transmission Date: 20130627
  Serious: No
  Sender: FDA-Public Use
  Company Number: US-PFIZER INC-2012265656

PATIENT
  Age: 26 Year
  Sex: Female
  Weight: 63.49 kg

DRUGS (1)
  1. CHANTIX [Suspect]
     Indication: SMOKING CESSATION THERAPY
     Dosage: 0.5 mg, 1x/day
     Route: 048
     Dates: start: 20121021, end: 20121023

REACTIONS (3)
  - Thinking abnormal [Unknown]
  - Depressed mood [Unknown]
  - Emotional disorder [Unknown]
